FAERS Safety Report 9461483 (Version 1)
Quarter: 2013Q3

REPORT INFORMATION
  Report Type: Report from Study
  Country: US (occurrence: US)
  Receive Date: 20130816
  Receipt Date: 20130816
  Transmission Date: 20140515
  Serious: Yes (Other)
  Sender: FDA-Public Use
  Company Number: PHEH2013US017360

PATIENT
  Age: 42 Year
  Sex: Male

DRUGS (1)
  1. EXJADE [Suspect]
     Indication: LYMPHOPROLIFERATIVE DISORDER
     Dosage: 1500 MG, QD
     Route: 048
     Dates: start: 2009, end: 2011

REACTIONS (4)
  - Lower limb fracture [Unknown]
  - Fall [Unknown]
  - Diabetes mellitus [Unknown]
  - Staphylococcal infection [Unknown]
